FAERS Safety Report 5574517-0 (Version None)
Quarter: 2007Q4

REPORT INFORMATION
  Report Type: 
  Country: None (occurrence: None)
  Receive Date: 20071227
  Receipt Date: 20071214
  Transmission Date: 20080405
  Serious: Yes (Hospitalization)
  Sender: FDA-Public Use
  Company Number: GB-AMGEN-US240313

PATIENT
  Sex: Male
  Weight: 76 kg

DRUGS (5)
  1. ENBREL [Suspect]
     Indication: POLYARTHRITIS
     Route: 058
     Dates: start: 20030101
  2. ENBREL [Suspect]
     Indication: PSORIATIC ARTHROPATHY
  3. LUSTRAL [Concomitant]
     Dosage: UNKNOWN
  4. VALDECOXIB [Concomitant]
     Dosage: UNKNOWN
  5. PROPRANOLOL [Concomitant]
     Dosage: UNKNOWN

REACTIONS (1)
  - TONGUE NEOPLASM MALIGNANT STAGE UNSPECIFIED [None]
